FAERS Safety Report 24092988 (Version 2)
Quarter: 2025Q1

REPORT INFORMATION
  Report Type: Spontaneous
  Country: BR (occurrence: BR)
  Receive Date: 20240715
  Receipt Date: 20250109
  Transmission Date: 20250409
  Serious: Yes (Hospitalization, Other)
  Sender: JOHNSON AND JOHNSON
  Company Number: BR-JNJFOC-20240725841

PATIENT
  Sex: Female

DRUGS (1)
  1. REMICADE [Suspect]
     Active Substance: INFLIXIMAB
     Indication: Crohn^s disease
     Route: 041
     Dates: end: 2019

REACTIONS (2)
  - Demyelination [Unknown]
  - Bone lesion [Unknown]
